FAERS Safety Report 5229740-1 (Version None)
Quarter: 2007Q1

REPORT INFORMATION
  Report Type: 
  Country: None (occurrence: None)
  Receive Date: 20070201
  Receipt Date: 20070116
  Transmission Date: 20070707
  Serious: Yes (Other)
  Sender: FDA-Public Use
  Company Number: 232428

PATIENT
  Age: 67 Year
  Sex: Female
  Weight: 60 kg

DRUGS (2)
  1. AVASTIN [Suspect]
     Indication: COLORECTAL CANCER
     Dosage: 300 MG, Q2W, INTRAVENOUS
     Route: 042
     Dates: start: 20060202, end: 20060518
  2. FLUOROURACIL [Concomitant]

REACTIONS (7)
  - ANAEMIA [None]
  - IMPAIRED HEALING [None]
  - METASTASES TO LYMPH NODES [None]
  - PERITONITIS [None]
  - PROTHROMBIN TIME PROLONGED [None]
  - RECTAL PERFORATION [None]
  - VAGINAL FISTULA [None]
